FAERS Safety Report 13617702 (Version 1)
Quarter: 2017Q2

REPORT INFORMATION
  Report Type: Spontaneous
  Country: US (occurrence: US)
  Receive Date: 20170606
  Receipt Date: 20170606
  Transmission Date: 20170830
  Serious: No
  Sender: FDA-Public Use
  Company Number: US-SA-2017SA012822

PATIENT
  Age: 71 Year
  Sex: Female

DRUGS (5)
  1. LANTUS SOLOSTAR [Suspect]
     Active Substance: INSULIN GLARGINE
     Indication: TYPE 2 DIABETES MELLITUS
     Dosage: DOSE:30 UNIT(S)
     Route: 065
  2. LANTUS SOLOSTAR [Suspect]
     Active Substance: INSULIN GLARGINE
     Indication: TYPE 2 DIABETES MELLITUS
     Dosage: DOSE:30 UNIT(S)
     Route: 065
     Dates: start: 2015
  3. SOLOSTAR [Concomitant]
     Active Substance: DEVICE
  4. GLIMEPIRIDE. [Concomitant]
     Active Substance: GLIMEPIRIDE
  5. SOLOSTAR [Concomitant]
     Active Substance: DEVICE

REACTIONS (5)
  - Injection site swelling [Unknown]
  - Drug dose omission [Unknown]
  - Injection site bruising [Unknown]
  - Visual impairment [Unknown]
  - Injection site haemorrhage [Unknown]
